FAERS Safety Report 8920282 (Version 1)
Quarter: 2012Q4

REPORT INFORMATION
  Report Type: 
  Country: US (occurrence: US)
  Receive Date: 20121121
  Receipt Date: 20121121
  Transmission Date: 20130627
  Serious: Yes (Hospitalization)
  Sender: FDA-Public Use
  Company Number: US-B.I. PHARMACEUTICALS,INC./RIDGEFIELD-2012-BI-00670BP

PATIENT
  Sex: Female
  Weight: 79 kg

DRUGS (8)
  1. SPIRIVA [Suspect]
     Indication: CHRONIC OBSTRUCTIVE PULMONARY DISEASE
     Dosage: 18 mcg
     Route: 055
     Dates: start: 2008
  2. XANAX [Concomitant]
     Indication: ANXIETY DISORDER
     Dates: start: 1970
  3. ECOTRIN [Concomitant]
     Indication: CARDIAC DISORDER
     Dosage: 325 mg
     Route: 048
     Dates: start: 201005
  4. SYNTHROID [Concomitant]
     Indication: HYPOTHYROIDISM
     Dosage: 75 mcg
     Route: 048
     Dates: start: 1997
  5. CATAPRES [Concomitant]
     Indication: HYPERTENSION
     Dates: start: 201201
  6. CLONAZEPAM [Concomitant]
     Indication: ANXIETY
     Route: 048
     Dates: start: 2011
  7. URSODIOL [Concomitant]
     Indication: LIVER INJURY
     Dosage: 2700 mg
     Route: 048
     Dates: start: 201111
  8. ADVAIR [Concomitant]
     Indication: CHRONIC OBSTRUCTIVE PULMONARY DISEASE
     Dosage: 2 puf
     Route: 055
     Dates: start: 2005

REACTIONS (1)
  - Superior vena cava syndrome [Not Recovered/Not Resolved]
